FAERS Safety Report 7292111-0 (Version None)
Quarter: 2011Q1

REPORT INFORMATION
  Report Type: 
  Country: None (occurrence: None)
  Receive Date: 20110215
  Receipt Date: 20110203
  Transmission Date: 20110831
  Serious: No
  Sender: FDA-Public Use
  Company Number: US-BIOGENIDEC-2011BI004596

PATIENT
  Sex: Female

DRUGS (3)
  1. FINAGRIN (PRESUMABLY PHENERGAN) [Concomitant]
     Indication: NAUSEA
     Dates: start: 20090915
  2. TYSABRI [Suspect]
     Indication: MULTIPLE SCLEROSIS
     Route: 042
     Dates: start: 20090812
  3. FINAGRIN (PRESUMABLY PHENERGAN) [Concomitant]
     Indication: HEADACHE
     Dates: start: 20090915

REACTIONS (5)
  - PRODUCTIVE COUGH [None]
  - LUNG DISORDER [None]
  - HEADACHE [None]
  - SINUSITIS [None]
  - NAUSEA [None]
